FAERS Safety Report 5428754-6 (Version None)
Quarter: 2007Q3

REPORT INFORMATION
  Report Type: 
  Country: None (occurrence: None)
  Receive Date: 20070829
  Receipt Date: 20070818
  Transmission Date: 20080115
  Serious: Yes (Disabling, Other)
  Sender: FDA-Public Use
  Company Number: PHEH2007US10792

PATIENT
  Age: 50 Year
  Sex: Female

DRUGS (4)
  1. ZELNORM [Suspect]
     Indication: IRRITABLE BOWEL SYNDROME
     Dosage: 6 MG, BID, PRN
     Route: 048
     Dates: start: 20050324, end: 20060101
  2. ALPRAZOLAM [Concomitant]
     Indication: AGITATION
     Dosage: 1 TABLET, EVERY 6 HOUS, PRN
     Route: 048
     Dates: start: 20040625
  3. NAPROXEN [Concomitant]
     Indication: PAIN
     Dosage: 1 TABLET, Q 12 HOURS, PRN
     Route: 048
     Dates: start: 20040203
  4. NAPROXEN [Concomitant]
     Dosage: 500 MG, BID, PRN
     Route: 048

REACTIONS (18)
  - ANXIETY [None]
  - BACK PAIN [None]
  - CHEST PAIN [None]
  - DEPRESSION [None]
  - DIARRHOEA [None]
  - FACIAL PALSY [None]
  - FIBROMYALGIA [None]
  - GASTRIC HAEMORRHAGE [None]
  - HAEMATOCHEZIA [None]
  - INSOMNIA [None]
  - MUSCLE SPASMS [None]
  - MUSCLE STRAIN [None]
  - MUSCULOSKELETAL PAIN [None]
  - PAIN [None]
  - PAIN IN EXTREMITY [None]
  - PANIC ATTACK [None]
  - TREMOR [None]
  - VISUAL ACUITY REDUCED [None]
